FAERS Safety Report 13333452 (Version 3)
Quarter: 2017Q3

REPORT INFORMATION
  Report Type: Report from Study
  Country: JP (occurrence: JP)
  Receive Date: 20170314
  Receipt Date: 20170710
  Transmission Date: 20171127
  Serious: Yes (Death, Hospitalization, Other)
  Sender: FDA-Public Use
  Company Number: JP-INCYTE CORPORATION-2017IN001595

PATIENT

DRUGS (4)
  1. JAKAVI [Suspect]
     Active Substance: RUXOLITINIB
     Dosage: 10 MG, QD
     Route: 048
     Dates: start: 20161226, end: 20170107
  2. RED BLOOD CELLS-LEUKOCYTES REDUCED [Concomitant]
     Indication: MYELODYSPLASTIC SYNDROME
     Dosage: 2 IU, UNK
     Route: 065
  3. JAKAVI [Suspect]
     Active Substance: RUXOLITINIB
     Indication: MYELODYSPLASTIC SYNDROME
     Dosage: 2.5 MG, BID
     Route: 048
     Dates: start: 20161204, end: 20161214
  4. HYDREA [Concomitant]
     Active Substance: HYDROXYUREA
     Indication: PRODUCT USED FOR UNKNOWN INDICATION
     Dosage: 500 MG, UNK
     Route: 048
     Dates: end: 20170202

REACTIONS (7)
  - Myeloproliferative neoplasm [Fatal]
  - Pain [Unknown]
  - Myelodysplastic syndrome [Fatal]
  - Product use in unapproved indication [Unknown]
  - Anal abscess [Not Recovered/Not Resolved]
  - Liver disorder [Recovered/Resolved]
  - Bone marrow failure [Not Recovered/Not Resolved]

NARRATIVE: CASE EVENT DATE: 20161204
